FAERS Safety Report 10067568 (Version 1)
Quarter: 2014Q2

REPORT INFORMATION
  Report Type: Spontaneous
  Country: US (occurrence: None)
  Receive Date: 20140408
  Receipt Date: 20140408
  Transmission Date: 20141212
  Serious: Yes (Hospitalization)
  Sender: FDA-Public Use
  Company Number: None

PATIENT
  Age: 52 Year
  Sex: Male
  Weight: 95.5 kg

DRUGS (1)
  1. BUPROPION [Suspect]
     Indication: DEPRESSION
     Route: 048
     Dates: start: 20130528, end: 20131225

REACTIONS (3)
  - Tremor [None]
  - Anxiety [None]
  - Cogwheel rigidity [None]
